FAERS Safety Report 15984063 (Version 4)
Quarter: 2019Q4

REPORT INFORMATION
  Report Type: Report from Study
  Country: DE (occurrence: DE)
  Receive Date: 20190220
  Receipt Date: 20191219
  Transmission Date: 20200122
  Serious: Yes (Hospitalization)
  Sender: FDA-Public Use
  Company Number: DE-ROCHE-2263419

PATIENT
  Age: 71 Year
  Sex: Female
  Weight: 57 kg

DRUGS (7)
  1. PERTUZUMAB. [Suspect]
     Active Substance: PERTUZUMAB
     Indication: BREAST CANCER
     Dosage: LOADING DOSE
     Route: 042
     Dates: start: 20180315
  2. LETROZOLE. [Suspect]
     Active Substance: LETROZOLE
     Indication: BREAST CANCER
     Dosage: DATE OF MOST RECENT DOSE OF LETROZOLE PRIOR TO ONSET OF SAE (SECOND EPISODE OF PAROXYSMAL ATRIAL FIB
     Route: 048
     Dates: start: 20180315
  3. ELIQUIS [Concomitant]
     Active Substance: APIXABAN
     Route: 065
     Dates: start: 201802
  4. ENALAPRIL [Concomitant]
     Active Substance: ENALAPRIL
     Dosage: 10/25 MG
     Route: 065
     Dates: start: 201802
  5. TRASTUZUMAB. [Suspect]
     Active Substance: TRASTUZUMAB
     Indication: BREAST CANCER
     Dosage: LOADING DOSE?ON 03/JUN/2019, SHE RECEIVED LAST DOSE OF TRASTUZUMAB 6 MG/KG PRIOR TO SAE.
     Route: 042
     Dates: start: 20180315
  6. PERTUZUMAB. [Suspect]
     Active Substance: PERTUZUMAB
     Dosage: MAINTENANCE DOSE?DATE OF MOST RECENT DOSE OF PERTUZUMAB PRIOR TO ONSET OF SAE (FIRST EPISODE OF PARO
     Route: 042
     Dates: start: 20180406
  7. TRASTUZUMAB. [Suspect]
     Active Substance: TRASTUZUMAB
     Dosage: MAINTENANCE DOSE?DATE OF MOST RECENT DOSE OF TRASTUZUMAB PRIOR TO ONSET OF SAE (FIRST EPISODE OF PAR
     Route: 042
     Dates: start: 20180406

REACTIONS (2)
  - Atrial fibrillation [Recovered/Resolved]
  - Ventricular flutter [Recovered/Resolved]

NARRATIVE: CASE EVENT DATE: 20190116
